FAERS Safety Report 11424597 (Version 1)
Quarter: 2015Q3

REPORT INFORMATION
  Report Type: Spontaneous
  Country: FR (occurrence: FR)
  Receive Date: 20150827
  Receipt Date: 20150827
  Transmission Date: 20151125
  Serious: Yes (Hospitalization, Other)
  Sender: FDA-Public Use
  Company Number: FR-ASTRAZENECA-2015SE81282

PATIENT
  Age: 3033 Week
  Sex: Female

DRUGS (10)
  1. KARDEGIC [Interacting]
     Active Substance: ASPIRIN LYSINE
     Indication: THROMBOSIS PROPHYLAXIS
     Route: 048
     Dates: start: 20150519, end: 20150609
  2. LOXEN [Concomitant]
     Active Substance: NICARDIPINE HYDROCHLORIDE
     Indication: HYPERTENSION
     Dates: start: 20150609
  3. KETOPROFENE MACOPHARMA [Suspect]
     Active Substance: KETOPROFEN
     Indication: PAIN
     Route: 042
     Dates: start: 20150609, end: 20150609
  4. SOLUPRED [Suspect]
     Active Substance: PREDNISOLONE
     Route: 048
     Dates: start: 20150607, end: 20150609
  5. PARACETAMOL [Concomitant]
     Active Substance: ACETAMINOPHEN
  6. KARDEGIC [Interacting]
     Active Substance: ASPIRIN LYSINE
     Indication: THROMBOSIS PROPHYLAXIS
     Route: 048
     Dates: start: 20150618
  7. TRANXENE T-TAB [Concomitant]
     Active Substance: CLORAZEPATE DIPOTASSIUM
     Dates: start: 20150609
  8. PERFALGAN [Concomitant]
     Active Substance: ACETAMINOPHEN
     Dates: start: 20150609
  9. BRILIQUE [Interacting]
     Active Substance: TICAGRELOR
     Indication: THROMBOSIS PROPHYLAXIS
     Route: 048
     Dates: start: 20150519, end: 20150609
  10. PERINDOPRIL [Concomitant]
     Active Substance: PERINDOPRIL

REACTIONS (7)
  - Carotid artery thrombosis [Unknown]
  - Subarachnoid haemorrhage [Recovered/Resolved with Sequelae]
  - Drug interaction [Recovered/Resolved with Sequelae]
  - Subdural haematoma [Recovered/Resolved with Sequelae]
  - Migraine [Unknown]
  - Coma [Unknown]
  - Hypertension [Unknown]

NARRATIVE: CASE EVENT DATE: 20150607
